FAERS Safety Report 19469224 (Version 5)
Quarter: 2021Q3

REPORT INFORMATION
  Report Type: Report from Study
  Country: US (occurrence: US)
  Receive Date: 20210629
  Receipt Date: 20210802
  Transmission Date: 20211014
  Serious: No
  Sender: FDA-Public Use
  Company Number: NVSC2021US131096

PATIENT
  Sex: Female

DRUGS (3)
  1. ENTRESTO [Suspect]
     Active Substance: SACUBITRIL\VALSARTAN
     Indication: PRODUCT USED FOR UNKNOWN INDICATION
     Dosage: 24.26 MG
     Route: 048
     Dates: start: 20210501
  2. ENTRESTO [Suspect]
     Active Substance: SACUBITRIL\VALSARTAN
     Dosage: 0.5 MG, BID
     Route: 065
     Dates: start: 20210609
  3. ENTRESTO [Suspect]
     Active Substance: SACUBITRIL\VALSARTAN
     Dosage: 49.51 MG, BID
     Route: 048

REACTIONS (6)
  - Muscular weakness [Not Recovered/Not Resolved]
  - Off label use [Recovering/Resolving]
  - Dizziness [Not Recovered/Not Resolved]
  - Lethargy [Not Recovered/Not Resolved]
  - Hypotension [Not Recovered/Not Resolved]
  - Joint swelling [Unknown]
